FAERS Safety Report 4974118-9 (Version None)
Quarter: 2006Q2

REPORT INFORMATION
  Report Type: 
  Country: None (occurrence: None)
  Receive Date: 20060417
  Receipt Date: 20060127
  Transmission Date: 20061013
  Serious: Yes (Hospitalization)
  Sender: FDA-Public Use
  Company Number: US-MERCK-0602USA00054

PATIENT
  Age: 76 Year
  Sex: Male
  Weight: 90 kg

DRUGS (10)
  1. VIOXX [Suspect]
     Route: 048
     Dates: start: 20020501, end: 20040901
  2. HYDROCHLOROTHIAZIDE [Concomitant]
     Route: 065
  3. ATENOLOL [Concomitant]
     Route: 065
  4. ASPIRIN [Concomitant]
     Route: 065
  5. VITAMINS (UNSPECIFIED) [Concomitant]
     Route: 065
  6. LISINOPRIL [Concomitant]
     Route: 065
  7. LOVASTATIN [Concomitant]
     Route: 065
  8. FELODIPINE [Concomitant]
     Route: 065
  9. LANTUS [Concomitant]
     Route: 065
  10. HUMALOG [Concomitant]
     Route: 065

REACTIONS (10)
  - ACUTE MYOCARDIAL INFARCTION [None]
  - ARTERIOSCLEROSIS [None]
  - BLOOD GLUCOSE DECREASED [None]
  - CEREBROVASCULAR ACCIDENT [None]
  - CORONARY ARTERY DISEASE [None]
  - HEART VALVE INSUFFICIENCY [None]
  - HYPERTENSION [None]
  - THROMBOSIS [None]
  - TRANSIENT ISCHAEMIC ATTACK [None]
  - UNEVALUABLE EVENT [None]
